FAERS Safety Report 5424071-9 (Version None)
Quarter: 2007Q3

REPORT INFORMATION
  Report Type: 
  Country: None (occurrence: None)
  Receive Date: 20070823
  Receipt Date: 20070813
  Transmission Date: 20080115
  Serious: Yes (Other)
  Sender: FDA-Public Use
  Company Number: US-SHR-US-2007-030203

PATIENT
  Age: 36 Year
  Sex: Female

DRUGS (3)
  1. BETASERON [Suspect]
     Indication: RELAPSING-REMITTING MULTIPLE SCLEROSIS
     Route: 058
     Dates: start: 20050101, end: 20060502
  2. BETASERON [Suspect]
     Dosage: 8 MIU, EVERY 2D
     Route: 058
     Dates: start: 20070305, end: 20070522
  3. BETASERON [Suspect]
     Dosage: UNK, UNK
     Route: 058
     Dates: start: 20070820

REACTIONS (2)
  - ANOVULATORY CYCLE [None]
  - UTERINE HAEMORRHAGE [None]
